FAERS Safety Report 4559687-5 (Version None)
Quarter: 2005Q2

REPORT INFORMATION
  Report Type: 
  Country: None (occurrence: None)
  Receive Date: 20050114
  Receipt Date: 20040201
  Transmission Date: 20051028
  Serious: Yes (Other)
  Sender: FDA-Public Use
  Company Number: FEI2004-0029

PATIENT
  Age: 33 Year
  Sex: Female
  Weight: 83.4619 kg

DRUGS (4)
  1. INTRAUTERINE COPPER CONTRACEPTIVE [Suspect]
     Indication: CONTRACEPTION
     Dosage: NA, NA; INTRA-UNTERINE
     Route: 015
     Dates: start: 20000707, end: 20040831
  2. METABOLIFE [Concomitant]
  3. IBUPROFEN [Concomitant]
  4. PSEUDOEPHEDRINE HCL [Concomitant]

REACTIONS (5)
  - BLOOD HUMAN CHORIONIC GONADOTROPIN INCREASED [None]
  - IUCD COMPLICATION [None]
  - PAIN [None]
  - UNINTENDED PREGNANCY [None]
  - VAGINAL HAEMORRHAGE [None]
